FAERS Safety Report 24272213 (Version 1)
Quarter: 2024Q3

REPORT INFORMATION
  Report Type: Spontaneous
  Country: DE (occurrence: DE)
  Receive Date: 20240902
  Receipt Date: 20240902
  Transmission Date: 20241017
  Serious: Yes (Other)
  Sender: SANDOZ
  Company Number: DE-SANDOZ-SDZ2024DE076584

PATIENT
  Age: 46 Year
  Sex: Female

DRUGS (3)
  1. ADALIMUMAB [Suspect]
     Active Substance: ADALIMUMAB
     Indication: Uveitis
     Dosage: 40 MG Q2WK
     Route: 058
  2. INFLIXIMAB [Concomitant]
     Active Substance: INFLIXIMAB
     Indication: Uveitis
     Dosage: 5 MG/KG
     Route: 042
  3. MYCOPHENOLATE MOFETIL [Concomitant]
     Active Substance: MYCOPHENOLATE MOFETIL
     Indication: Uveitis
     Dosage: 2 G, QD
     Route: 065

REACTIONS (2)
  - Glaucoma [Unknown]
  - Cataract [Unknown]
